FAERS Safety Report 7200505-4 (Version None)
Quarter: 2010Q4

REPORT INFORMATION
  Report Type: 
  Country: None (occurrence: None)
  Receive Date: 20101228
  Receipt Date: 20101222
  Transmission Date: 20110411
  Serious: Yes (Other)
  Sender: FDA-Public Use
  Company Number: CH-PFIZER INC-2010095159

PATIENT
  Sex: Male

DRUGS (4)
  1. ATARAX [Suspect]
     Route: 064
  2. EFFEXOR [Suspect]
     Indication: BIPOLAR DISORDER
     Dosage: 262.5 UNK, UNK
     Route: 064
  3. TERALITHE [Suspect]
     Indication: BIPOLAR DISORDER
     Dosage: UNK
     Route: 064
  4. EUTHYROX [Concomitant]
     Indication: HYPOTHYROIDISM
     Dosage: 50 UG, 1X/DAY
     Route: 064

REACTIONS (5)
  - DRUG EXPOSURE DURING PREGNANCY [None]
  - MATERNAL DRUGS AFFECTING FOETUS [None]
  - OFF LABEL USE [None]
  - POLYHYDRAMNIOS [None]
  - PREMATURE BABY [None]
